FAERS Safety Report 4980341-X (Version None)
Quarter: 2006Q2

REPORT INFORMATION
  Report Type: 
  Country: None (occurrence: None)
  Receive Date: 20060421
  Receipt Date: 20060421
  Transmission Date: 20061013
  Serious: Yes (Hospitalization)
  Sender: FDA-Public Use
  Company Number: None

PATIENT
  Age: 59 Year
  Sex: Male
  Weight: 69.2 kg

DRUGS (2)
  1. VANCOMYCIN [Suspect]
     Indication: OSTEOMYELITIS
     Dosage: 750 MG IV Q DAY
     Route: 042
     Dates: start: 20060221
  2. AUGMENTIN '125' [Suspect]
     Dosage: 875/125 MG PO BID
     Route: 048
     Dates: start: 20060221

REACTIONS (1)
  - LEUKOPENIA [None]
